FAERS Safety Report 6957446-7 (Version None)
Quarter: 2010Q3

REPORT INFORMATION
  Report Type: 
  Country: None (occurrence: None)
  Receive Date: 20100831
  Receipt Date: 20100819
  Transmission Date: 20110219
  Serious: Yes (Hospitalization)
  Sender: FDA-Public Use
  Company Number: US-CELGENEUS-163-21880-10081959

PATIENT
  Age: 62 Year
  Sex: Female

DRUGS (5)
  1. REVLIMID [Suspect]
     Indication: MULTIPLE MYELOMA
     Route: 048
  2. REVLIMID [Suspect]
     Route: 048
  3. DEXAMETHASONE [Concomitant]
     Indication: MULTIPLE MYELOMA
     Route: 048
  4. ZOLEDRONIC ACID [Concomitant]
     Indication: MULTIPLE MYELOMA
     Route: 065
  5. ZOLEDRONIC ACID [Concomitant]
     Route: 065

REACTIONS (6)
  - DECREASED APPETITE [None]
  - DIARRHOEA [None]
  - FATIGUE [None]
  - RHINORRHOEA [None]
  - TUBULOINTERSTITIAL NEPHRITIS [None]
  - VITILIGO [None]
